FAERS Safety Report 8595854-1 (Version None)
Quarter: 2012Q3

REPORT INFORMATION
  Report Type: 
  Country: None (occurrence: None)
  Receive Date: 20120815
  Receipt Date: 20120806
  Transmission Date: 20120928
  Serious: Yes (Other)
  Sender: FDA-Public Use
  Company Number: JP-PFIZER INC-2012179116

PATIENT
  Age: 60 Year
  Sex: Female

DRUGS (2)
  1. LATANOPROST [Suspect]
     Indication: GLAUCOMA
     Dosage: UNK
     Route: 047
     Dates: start: 20120601
  2. CANDESARTAN CILEXETIL [Concomitant]
     Dosage: UNK

REACTIONS (1)
  - MENIERE'S DISEASE [None]
